FAERS Safety Report 12877065 (Version 4)
Quarter: 2018Q1

REPORT INFORMATION
  Report Type: Report from Study
  Country: KR (occurrence: KR)
  Receive Date: 20161024
  Receipt Date: 20180206
  Transmission Date: 20180508
  Serious: Yes (Hospitalization)
  Sender: FDA-Public Use
  Company Number: KR-PFIZER INC-2016482578

PATIENT
  Age: 69 Year
  Sex: Female
  Weight: 51.8 kg

DRUGS (24)
  1. KETOROLAC TROMETHAMINE. [Concomitant]
     Active Substance: KETOROLAC TROMETHAMINE
     Indication: PAIN MANAGEMENT
     Dosage: 30 MG, 1X/DAY
     Route: 042
     Dates: start: 20161013, end: 20161013
  2. NO SUBJECT DRUG [Suspect]
     Active Substance: UNSPECIFIED INGREDIENT
     Indication: OVARIAN CANCER
     Dosage: NO DOSE GIVEN
  3. LEVACALM [Concomitant]
     Indication: HYPERTENSION
     Dosage: 170 MG, 1X/DAY
     Route: 048
     Dates: start: 20160920
  4. BEECOM HEXA [Concomitant]
     Indication: VITAMIN SUPPLEMENTATION
     Dosage: 2 MG, 1X/DAY
     Route: 042
     Dates: start: 20161013, end: 20161013
  5. AGIOCUR /00029101/ [Concomitant]
     Indication: PROPHYLAXIS
     Dosage: UNK
     Dates: start: 20161005, end: 20161009
  6. ZIPAN /00599202/ [Concomitant]
     Indication: PAIN MANAGEMENT
     Dosage: 50 MG, 1X/DAY
     Route: 042
     Dates: start: 20161013, end: 20161013
  7. BAZEDOXIFENE [Concomitant]
     Active Substance: BAZEDOXIFENE
     Indication: OSTEOPOROSIS
     Dosage: UNK
     Dates: start: 20160920
  8. CIPROFLOXACIN. [Concomitant]
     Active Substance: CIPROFLOXACIN
     Indication: INFECTION PROPHYLAXIS
     Dosage: UNK
     Dates: start: 20161006, end: 20161008
  9. LACIDOFIL [Concomitant]
     Active Substance: LACTOBACILLUS ACIDOPHILUS\LACTOBACILLUS RHAMNOSUS
     Indication: PAIN MANAGEMENT
     Dosage: 20 MG, 2X/DAY
     Route: 048
     Dates: start: 20161013, end: 20161016
  10. GENTAMICIN. [Concomitant]
     Active Substance: GENTAMICIN
     Indication: CHEMOTHERAPY
     Dosage: UNK
     Dates: start: 20161006, end: 20161006
  11. TOUJEO [Concomitant]
     Active Substance: INSULIN GLARGINE
     Indication: DIABETES MELLITUS
     Dosage: 10 IU, 1X/DAY
     Route: 058
     Dates: start: 20160920
  12. VIVIANT [Concomitant]
     Active Substance: BAZEDOXIFENE
     Indication: OSTEOPOROSIS
     Dosage: 20 MG, 1X/DAY
     Route: 048
     Dates: start: 20120920
  13. INSULIN [Concomitant]
     Active Substance: INSULIN NOS
     Indication: DIABETES MELLITUS
     Dosage: UNK
     Dates: start: 20160920
  14. EUCARBON [Concomitant]
     Indication: PROPHYLAXIS
     Dosage: UNK
     Dates: start: 20161005, end: 20161009
  15. SALINE /00075401/ [Concomitant]
     Active Substance: SODIUM CHLORIDE
     Indication: FLUID REPLACEMENT
     Dosage: 500 ML, 1X/DAY
     Route: 042
     Dates: start: 20161013, end: 20161013
  16. ZALTRON [Concomitant]
     Indication: PAIN MANAGEMENT
     Dosage: 80 MG, 3X/DAY
     Route: 048
     Dates: start: 20161013, end: 20161016
  17. GASMOTIN [Concomitant]
     Active Substance: MOSAPRIDE CITRATE
     Indication: PAIN MANAGEMENT
     Dosage: 5 MG, 3X/DAY
     Route: 048
     Dates: start: 20161013, end: 20161013
  18. TRAJENTA DUO [Concomitant]
     Active Substance: LINAGLIPTIN\METFORMIN HYDROCHLORIDE
     Indication: DIABETES MELLITUS
     Dosage: 2.5 MG, 2X/DAY
     Route: 048
     Dates: start: 20160920
  19. CEFAZOLIN [Concomitant]
     Active Substance: CEFAZOLIN
     Indication: INFECTION PROPHYLAXIS
     Dosage: UNK
     Dates: start: 20161006, end: 20161006
  20. LIDOCAINE. [Concomitant]
     Active Substance: LIDOCAINE
     Indication: PAIN PROPHYLAXIS
     Dosage: UNK
     Dates: start: 20161006, end: 20161006
  21. HEPARIN [Concomitant]
     Active Substance: HEPARIN SODIUM
     Indication: CHEMOTHERAPY
     Dosage: UNK
     Dates: start: 20161006, end: 20161006
  22. PACLITAXEL. [Suspect]
     Active Substance: PACLITAXEL
     Indication: OVARIAN CANCER
     Dosage: 222 MG (175MG/M2), EVERY 3 WEEKS
     Route: 042
     Dates: start: 20161011
  23. CARBOPLATIN. [Suspect]
     Active Substance: CARBOPLATIN
     Indication: OVARIAN CANCER
     Dosage: 900 MG, EVERY 3 WEEKS
     Route: 042
     Dates: start: 20161011
  24. WE Q [Concomitant]
     Indication: PAIN MANAGEMENT
     Dosage: 2 DF (RANITIDINE 75 MG, BISMUTH SUBCITRATE 100 MG AND SUCRALFATE 300 MG), 3X/DAY
     Route: 048
     Dates: start: 20161013, end: 20161016

REACTIONS (1)
  - Abdominal pain [Recovered/Resolved]

NARRATIVE: CASE EVENT DATE: 20161013
